FAERS Safety Report 12867374 (Version 1)
Quarter: 2016Q4

REPORT INFORMATION
  Report Type: Spontaneous
  Country: UZ (occurrence: UZ)
  Receive Date: 20161020
  Receipt Date: 20161020
  Transmission Date: 20170207
  Serious: Yes (Other)
  Sender: FDA-Public Use
  Company Number: UZ-SYMPLMED PHARMACEUTICALS-2016SYMPLMED000334

PATIENT

DRUGS (1)
  1. PRESTANCE [Suspect]
     Active Substance: AMLODIPINE BESYLATE\PERINDOPRIL ARGININE
     Indication: HYPERTENSION
     Dosage: 0.5 (10MG/10MG) TABLET, QD
     Route: 048
     Dates: start: 20161004, end: 20161006

REACTIONS (2)
  - Product use issue [Unknown]
  - Glaucoma [Recovered/Resolved]

NARRATIVE: CASE EVENT DATE: 20161004
